FAERS Safety Report 9807781 (Version 1)
Quarter: 2014Q1

REPORT INFORMATION
  Report Type: Spontaneous
  Country: US (occurrence: US)
  Receive Date: 20140110
  Receipt Date: 20140110
  Transmission Date: 20141002
  Serious: Yes (Hospitalization)
  Sender: FDA-Public Use
  Company Number: US-JNJFOC-20140103113

PATIENT
  Sex: Male

DRUGS (3)
  1. INVOKANA [Suspect]
     Indication: TYPE 2 DIABETES MELLITUS
     Route: 048
  2. DIURETIC [Concomitant]
  3. UNKNOWN MEDICATION [Concomitant]

REACTIONS (2)
  - Renal failure [Unknown]
  - Dehydration [Unknown]
